FAERS Safety Report 21551628 (Version 1)
Quarter: 2022Q4

REPORT INFORMATION
  Report Type: Report from Study
  Country: US (occurrence: US)
  Receive Date: 20221103
  Receipt Date: 20221103
  Transmission Date: 20230113
  Serious: Yes (Hospitalization)
  Sender: FDA-Public Use
  Company Number: US-ABBVIE-22K-163-4469600-00

PATIENT
  Age: 15 Year
  Sex: Female

DRUGS (2)
  1. HUMIRA [Suspect]
     Active Substance: ADALIMUMAB
     Indication: Hidradenitis
     Dosage: STRENGTH: 40 MG?CITRATE FREE?INCREASED TO WEEKLY
     Route: 058
  2. HUMIRA [Suspect]
     Active Substance: ADALIMUMAB
     Dosage: STRENGTH: 40 MG?CITRATE FREE
     Route: 058

REACTIONS (3)
  - Hidradenitis [Recovered/Resolved]
  - Therapeutic product effect incomplete [Unknown]
  - Hidradenitis [Unknown]

NARRATIVE: CASE EVENT DATE: 20220501
